FAERS Safety Report 5118313-7 (Version None)
Quarter: 2006Q4

REPORT INFORMATION
  Report Type: 
  Country: None (occurrence: None)
  Receive Date: 20061002
  Receipt Date: 20060822
  Transmission Date: 20070319
  Serious: Yes (Hospitalization, Other)
  Sender: FDA-Public Use
  Company Number: PHEH2006US10767

PATIENT
  Sex: Male

DRUGS (2)
  1. TEGRETOL-XR [Suspect]
     Route: 064
  2. TOPAMAX [Suspect]
     Route: 064

REACTIONS (10)
  - ANTICONVULSANT DRUG LEVEL [None]
  - AUTISM [None]
  - CRYING [None]
  - DEVELOPMENTAL DELAY [None]
  - DRUG EXPOSURE DURING PREGNANCY [None]
  - DRUG WITHDRAWAL SYNDROME NEONATAL [None]
  - FOOD INTOLERANCE [None]
  - HYPOVENTILATION [None]
  - NEONATAL DISORDER [None]
  - POSTMATURE BABY [None]
